FAERS Safety Report 14438507 (Version 2)
Quarter: 2018Q2

REPORT INFORMATION
  Report Type: Spontaneous
  Country: TN (occurrence: TN)
  Receive Date: 20180125
  Receipt Date: 20180404
  Transmission Date: 20180711
  Serious: Yes (Hospitalization, Other)
  Sender: FDA-Public Use
  Company Number: TN-LUPIN PHARMACEUTICALS INC.-2018-00347

PATIENT
  Age: 50 Year
  Sex: Female

DRUGS (6)
  1. PHENOBARBITAL. [Concomitant]
     Active Substance: PHENOBARBITAL
     Indication: SEIZURE
     Dosage: 100 MG, QD
     Route: 065
  2. LEVETIRACETAM TABLETS [Suspect]
     Active Substance: LEVETIRACETAM
     Indication: SEIZURE
     Dosage: 500 MG, BID
     Route: 065
     Dates: start: 201307, end: 201307
  3. VALPROATE [Concomitant]
     Active Substance: VALPROIC ACID
     Indication: SEIZURE
     Dosage: 2000 MG, QD
     Route: 065
  4. CELECOXIB. [Suspect]
     Active Substance: CELECOXIB
     Indication: ARTHRALGIA
     Dosage: UNK
     Route: 065
     Dates: start: 201306
  5. CLARITHROMYCIN. [Suspect]
     Active Substance: CLARITHROMYCIN
     Indication: ANGINA PECTORIS
     Dosage: UNK
     Route: 065
     Dates: start: 201401
  6. AMOXICILLIN AND CLAVULANIC ACID [Suspect]
     Active Substance: AMOXICILLIN\CLAVULANIC ACID
     Indication: UPPER RESPIRATORY TRACT INFECTION
     Dosage: UNK
     Route: 065
     Dates: start: 201309

REACTIONS (4)
  - Cardio-respiratory arrest [Recovered/Resolved]
  - Erythema [Recovered/Resolved]
  - Oedema [Recovered/Resolved]
  - Generalised tonic-clonic seizure [Recovered/Resolved]

NARRATIVE: CASE EVENT DATE: 201306
